FAERS Safety Report 4723832-9 (Version None)
Quarter: 2005Q3

REPORT INFORMATION
  Report Type: 
  Country: None (occurrence: None)
  Receive Date: 20050721
  Receipt Date: 20050705
  Transmission Date: 20060218
  Serious: Yes (Hospitalization, Other)
  Sender: FDA-Public Use
  Company Number: DSA_70682_2005

PATIENT
  Age: 42 Year
  Sex: Male
  Weight: 56.246 kg

DRUGS (22)
  1. AZATHIOPRINE [Suspect]
     Dosage: 25 MG QDAY
     Dates: start: 19870901, end: 20040503
  2. PROCRIT [Suspect]
     Indication: NEPHROGENIC ANAEMIA
     Dosage: DF SC
     Route: 058
     Dates: end: 20040503
  3. PROCRIT [Suspect]
     Indication: ANAEMIA
     Dosage: 10000 IU NA SC
     Route: 058
     Dates: start: 19870101
  4. PROCRIT [Suspect]
     Indication: ANAEMIA
     Dosage: 10000 IU QWK SC
     Route: 058
     Dates: start: 20030814
  5. PROCRIT [Suspect]
     Indication: NEPHROGENIC ANAEMIA
     Dosage: 10000IU SC
     Route: 058
     Dates: start: 20030204
  6. PROCRIT [Suspect]
     Indication: NEPHROGENIC ANAEMIA
     Dosage: 40000 IU QWK SC
     Route: 058
     Dates: start: 20030902
  7. PROCRIT [Suspect]
     Indication: NEPHROGENIC ANAEMIA
     Dosage: 40000 IU NA SC
     Route: 058
     Dates: start: 20031111
  8. PROCRIT [Suspect]
     Indication: NEPHROGENIC ANAEMIA
     Dosage: DF SC
     Route: 058
     Dates: end: 20040601
  9. PROCRIT [Suspect]
     Indication: NEPHROGENIC ANAEMIA
     Dosage: 40000 IU QWK SC
     Route: 058
     Dates: start: 20040701
  10. PROCRIT [Suspect]
     Indication: NEPHROGENIC ANAEMIA
     Dosage: 100000 IU 3XWK SC
     Route: 058
     Dates: start: 20050301
  11. ALLOPURINOL [Suspect]
     Indication: GOUT
     Dates: start: 20030605, end: 20040503
  12. FOLIC ACID [Concomitant]
  13. CYCLOSPORINE [Concomitant]
  14. PREDNISONE [Concomitant]
  15. VERAPAMIL HYDROCHLORIDE [Concomitant]
  16. FUROSEMIDE [Concomitant]
  17. ALENDRONATE [Concomitant]
  18. EFFEXOR [Concomitant]
  19. ZOLOFT [Concomitant]
  20. VITAMIN B6` [Concomitant]
  21. VITAMIN B-12 [Concomitant]
  22. KLONOPIN [Concomitant]

REACTIONS (7)
  - BLOOD IMMUNOGLOBULIN G INCREASED [None]
  - BLOOD IMMUNOGLOBULIN M DECREASED [None]
  - BONE MARROW DEPRESSION [None]
  - GOUT [None]
  - HAEMOGLOBIN DECREASED [None]
  - RED BLOOD CELL COUNT DECREASED [None]
  - RETICULOCYTE COUNT DECREASED [None]
